FAERS Safety Report 9582549 (Version 1)
Quarter: 2013Q4

REPORT INFORMATION
  Report Type: Spontaneous
  Country: FR (occurrence: FR)
  Receive Date: 20131002
  Receipt Date: 20131002
  Transmission Date: 20140711
  Serious: Yes (Hospitalization)
  Sender: FDA-Public Use
  Company Number: FR-GILEAD-2013-0084699

PATIENT
  Sex: Male

DRUGS (3)
  1. EVIPLERA [Suspect]
     Indication: HIV INFECTION
  2. LEVOTHYROX [Suspect]
     Indication: PRODUCT USED FOR UNKNOWN INDICATION
  3. RITONAVIR [Concomitant]

REACTIONS (4)
  - Cold sweat [Recovered/Resolved]
  - Palpitations [Recovered/Resolved]
  - Overdose [Recovered/Resolved]
  - Drug interaction [Recovered/Resolved]
